FAERS Safety Report 7271872-0 (Version None)
Quarter: 2011Q1

REPORT INFORMATION
  Report Type: 
  Country: None (occurrence: None)
  Receive Date: 20110203
  Receipt Date: 20110131
  Transmission Date: 20110831
  Serious: Yes (Other)
  Sender: FDA-Public Use
  Company Number: US-JNJFOC-20100905730

PATIENT
  Sex: Male
  Weight: 104.33 kg

DRUGS (4)
  1. NUCYNTA [Suspect]
     Indication: PAIN
     Route: 048
  2. NUCYNTA [Suspect]
     Indication: MUSCULOSKELETAL PAIN
     Route: 048
  3. GABAPENTIN [Concomitant]
     Route: 048
  4. LORAZEPAM [Concomitant]
     Route: 048

REACTIONS (4)
  - SUICIDE ATTEMPT [None]
  - SOMNAMBULISM [None]
  - DEPRESSION [None]
  - AMNESTIC DISORDER [None]
